FAERS Safety Report 9169461 (Version 1)
Quarter: 2013Q1

REPORT INFORMATION
  Report Type: Spontaneous
  Country: GB (occurrence: GB)
  Receive Date: 20130318
  Receipt Date: 20130318
  Transmission Date: 20140127
  Serious: Yes (Disabling)
  Sender: FDA-Public Use
  Company Number: GB-MYLANLABS-2013S1005071

PATIENT
  Age: 79 Year
  Sex: Male
  Weight: 60.77 kg

DRUGS (2)
  1. TAMSULOSIN [Suspect]
     Indication: PROSTATOMEGALY
     Route: 048
     Dates: start: 20080201
  2. BLOOD PRESSURE MEDICATION [Concomitant]
     Indication: PRODUCT USED FOR UNKNOWN INDICATION

REACTIONS (3)
  - Mood swings [Not Recovered/Not Resolved]
  - Personality change [Not Recovered/Not Resolved]
  - Amnesia [Not Recovered/Not Resolved]
